FAERS Safety Report 18503159 (Version 2)
Quarter: 2021Q2

REPORT INFORMATION
  Report Type: Report from Study
  Country: AR (occurrence: AR)
  Receive Date: 20201113
  Receipt Date: 20210526
  Transmission Date: 20210717
  Serious: Yes (Hospitalization)
  Sender: FDA-Public Use
  Company Number: NVSC2020AR093257

PATIENT
  Age: 84 Year
  Sex: Male

DRUGS (9)
  1. CLONAZEPAM. [Concomitant]
     Active Substance: CLONAZEPAM
     Indication: SLEEP DISORDER
     Dosage: UNK (SINCE MANY YEARS AGO)
     Route: 065
  2. ULTIBRO BREEZHALER [Suspect]
     Active Substance: GLYCOPYRRONIUM\INDACATEROL
     Dosage: 110 UG, QD
     Route: 065
  3. LUDASTERIN [Concomitant]
     Indication: PRODUCT USED FOR UNKNOWN INDICATION
     Dosage: UNK (SINCE MANY YEARS AGO)
     Route: 065
  4. ULTIBRO BREEZHALER [Suspect]
     Active Substance: GLYCOPYRRONIUM\INDACATEROL
     Indication: CHRONIC OBSTRUCTIVE PULMONARY DISEASE
     Dosage: 110 UG, QD
     Route: 065
  5. ANDRIN [Concomitant]
     Indication: PRODUCT USED FOR UNKNOWN INDICATION
     Dosage: UNK (SINCE MANY YEARS AGO)
     Route: 065
  6. LIPITOR [Concomitant]
     Active Substance: ATORVASTATIN CALCIUM
     Indication: BLOOD CHOLESTEROL INCREASED
     Dosage: UNK
     Route: 065
     Dates: start: 2019
  7. DIOVAN [Suspect]
     Active Substance: VALSARTAN
     Indication: HYPERTENSION
     Dosage: 160 OT, QD
     Route: 065
     Dates: start: 2019
  8. PROFLAX [Concomitant]
     Indication: GLAUCOMA
     Dosage: UNK (SINCE 30 YEARS AGO)
     Route: 047
  9. COMBIVENT [Concomitant]
     Active Substance: ALBUTEROL SULFATE\IPRATROPIUM BROMIDE
     Indication: CHRONIC OBSTRUCTIVE PULMONARY DISEASE
     Dosage: UNK
     Route: 065
     Dates: start: 2019

REACTIONS (10)
  - Respiratory failure [Recovering/Resolving]
  - Renal failure [Unknown]
  - Fluid retention [Unknown]
  - General physical health deterioration [Unknown]
  - Total lung capacity decreased [Unknown]
  - Oedema [Unknown]
  - Blood sodium decreased [Unknown]
  - Cardiac failure [Recovering/Resolving]
  - Arthralgia [Unknown]
  - Weight increased [Unknown]

NARRATIVE: CASE EVENT DATE: 201906
